FAERS Safety Report 7583784-3 (Version None)
Quarter: 2011Q2

REPORT INFORMATION
  Report Type: 
  Country: None (occurrence: None)
  Receive Date: 20110630
  Receipt Date: 20110623
  Transmission Date: 20111010
  Serious: Yes (Hospitalization)
  Sender: FDA-Public Use
  Company Number: US-ROCHE-785796

PATIENT
  Sex: Female
  Weight: 69.1 kg

DRUGS (14)
  1. PROGRAF [Concomitant]
  2. LOESTRIN 24 FE [Concomitant]
  3. CELLCEPT [Suspect]
     Route: 048
  4. PROTONIX [Concomitant]
  5. VITAMIN B [Concomitant]
  6. VITAMIN TAB [Concomitant]
     Dosage: DRUG REPORTED AS PNV SELECT
  7. XANAX [Concomitant]
  8. SINGULAIR [Concomitant]
  9. CELLCEPT [Suspect]
     Indication: LIVER TRANSPLANT
     Route: 048
     Dates: start: 20080101
  10. EPIPEN [Concomitant]
  11. VENTOLIN HFA [Concomitant]
  12. PROMETHAZINE [Concomitant]
  13. EFFEXOR [Concomitant]
  14. CALCIUM CARBONATE [Concomitant]

REACTIONS (6)
  - HEADACHE [None]
  - ANXIETY [None]
  - IMPAIRED WORK ABILITY [None]
  - DEPRESSION [None]
  - WEIGHT INCREASED [None]
  - SUICIDAL IDEATION [None]
